FAERS Safety Report 13783729 (Version 1)
Quarter: 2017Q3

REPORT INFORMATION
  Report Type: Spontaneous
  Country: US (occurrence: US)
  Receive Date: 20170724
  Receipt Date: 20170724
  Transmission Date: 20171127
  Serious: No
  Sender: FDA-Public Use
  Company Number: PHEH2017US022729

PATIENT
  Sex: Female

DRUGS (1)
  1. TYKERB [Suspect]
     Active Substance: LAPATINIB DITOSYLATE
     Indication: OESOPHAGEAL CARCINOMA
     Dosage: 1000 MG, QD
     Route: 048
     Dates: start: 20170330, end: 20170720

REACTIONS (1)
  - Drug ineffective [Unknown]
